FAERS Safety Report 23898513 (Version 2)
Quarter: 2024Q2

REPORT INFORMATION
  Report Type: Spontaneous
  Country: FR (occurrence: FR)
  Receive Date: 20240525
  Receipt Date: 20240606
  Transmission Date: 20240716
  Serious: Yes (Other)
  Sender: FDA-Public Use
  Company Number: FR-BAUSCH-BL-2020-023134

PATIENT
  Age: 81 Year
  Sex: Male

DRUGS (4)
  1. ALPHAGAN P [Suspect]
     Active Substance: BRIMONIDINE TARTRATE
     Indication: Intraocular pressure increased
     Dosage: 1 DROP IN THE MORNING IN BOTH EYES
     Route: 047
     Dates: start: 20191024, end: 202008
  2. HYALURONATE SODIUM\TREHALOSE [Suspect]
     Active Substance: HYALURONATE SODIUM\TREHALOSE
     Indication: Eye irritation
     Dosage: 1 DROP FOUR TO SIX TIMES PER DAY IN BOTH EYES
     Route: 047
     Dates: start: 201911, end: 202008
  3. LATANOPROST [Suspect]
     Active Substance: LATANOPROST
     Indication: Intraocular pressure increased
     Dosage: 1 DROP PER DAY IN EVENING IN BOTH EYES,  50 MICROGRAMMES/ML, COLLYRE EN SOLUTION
     Route: 047
     Dates: start: 201911, end: 202008
  4. BRIMONIDINE [Suspect]
     Active Substance: BRIMONIDINE TARTRATE
     Indication: Intraocular pressure increased
     Dosage: (MANUFACTURER EG LABORATORY) IN BOTH EYES
     Route: 047

REACTIONS (2)
  - Drug ineffective [Unknown]
  - Optic nerve disorder [Unknown]

NARRATIVE: CASE EVENT DATE: 20190101
